FAERS Safety Report 8262934-X (Version None)
Quarter: 2012Q2

REPORT INFORMATION
  Report Type: 
  Country: None (occurrence: None)
  Receive Date: 20120405
  Receipt Date: 20120402
  Transmission Date: 20120825
  Serious: Yes (Other)
  Sender: FDA-Public Use
  Company Number: IT-GLAXOSMITHKLINE-B0793497A

PATIENT
  Sex: Male

DRUGS (6)
  1. FUROSEMIDE [Concomitant]
  2. CARVEDILOL [Concomitant]
  3. SPIRONOLACTONE [Concomitant]
  4. ATORVASTATIN [Concomitant]
  5. VOTRIENT [Suspect]
     Indication: PRODUCT USED FOR UNKNOWN INDICATION
     Route: 065
     Dates: start: 20110901, end: 20120101
  6. AMLODIPINE [Concomitant]

REACTIONS (1)
  - PANCREATITIS [None]
